FAERS Safety Report 20136827 (Version 1)
Quarter: 2021Q4

REPORT INFORMATION
  Report Type: Other
  Country: US (occurrence: US)
  Receive Date: 20211201
  Receipt Date: 20211201
  Transmission Date: 20220304
  Serious: No
  Sender: FDA-Public Use
  Company Number: US-LEADIANT BIOSCIENCES INC-2020STPI000449

PATIENT
  Sex: Female

DRUGS (7)
  1. CYSTARAN [Suspect]
     Active Substance: CYSTEAMINE HYDROCHLORIDE
     Indication: Cystinosis
     Dosage: 1 DROP BOTH EYE EVERY HOUR WHILE AWAKE
     Route: 047
     Dates: start: 20140812
  2. IMURAN [Concomitant]
     Active Substance: AZATHIOPRINE
  3. MAGNESIUM [Concomitant]
     Active Substance: MAGNESIUM
  4. PREDNISONE [Concomitant]
     Active Substance: PREDNISONE
  5. PROGRAF [Concomitant]
     Active Substance: TACROLIMUS
  6. SYNTHROID [Concomitant]
     Active Substance: LEVOTHYROXINE SODIUM
  7. CHOLECALCIFEROL [Concomitant]
     Active Substance: CHOLECALCIFEROL

REACTIONS (1)
  - Eye irritation [Not Recovered/Not Resolved]
